FAERS Safety Report 9102906 (Version 5)
Quarter: 2013Q2

REPORT INFORMATION
  Report Type: Spontaneous
  Country: US (occurrence: US)
  Receive Date: 20130219
  Receipt Date: 20130408
  Transmission Date: 20140414
  Serious: Yes (Death, Hospitalization, Other)
  Sender: FDA-Public Use
  Company Number: US-PFIZER INC-2013060694

PATIENT
  Age: 81 Year
  Sex: Female

DRUGS (8)
  1. DEPO-MEDROL [Suspect]
     Indication: RADICULOPATHY
     Dosage: 80 MG OF 40MG/ML, SINGLE, ONE TIME DOSE
     Route: 008
     Dates: start: 20130208, end: 20130208
  2. DEPO-MEDROL [Suspect]
     Indication: LUMBAR SPINAL STENOSIS
  3. POTASSIUM CHLORIDE [Concomitant]
     Indication: HYPOKALAEMIA
     Dosage: 20 MG, 3X/DAY
  4. HCTZ [Concomitant]
     Indication: HYPERTENSION
     Dosage: 25 MG, EVERY DAY DAILY
  5. ASPIRIN [Concomitant]
     Dosage: 81 MG, 1X/DAY
  6. HYDROCODONE W/APAP [Concomitant]
     Indication: PAIN
     Dosage: 1-2 TABS PRN
  7. ALEVE [Concomitant]
     Dosage: BID
  8. CHLORTHALIDONE [Concomitant]
     Dosage: 25 MG, 1X/DAY

REACTIONS (9)
  - Death [Fatal]
  - Off label use [Unknown]
  - Product quality issue [Unknown]
  - Gas gangrene [Unknown]
  - Spinal disorder [Unknown]
  - Clostridial infection [Unknown]
  - Necrotising fasciitis [Unknown]
  - Anxiety [Unknown]
  - Back pain [Unknown]
